FAERS Safety Report 7138749-2 (Version None)
Quarter: 2010Q4

REPORT INFORMATION
  Report Type: 
  Country: None (occurrence: None)
  Receive Date: 20101122
  Receipt Date: 20101110
  Transmission Date: 20110411
  Serious: Yes (Death, Hospitalization)
  Sender: FDA-Public Use
  Company Number: 2009AC000340

PATIENT
  Age: 15 Year
  Sex: Male

DRUGS (36)
  1. DIGOXIN [Suspect]
     Dosage: (PO) (0.25 MG; QD; PO) (0.125 MG; QD; PO)
     Route: 048
     Dates: start: 20060401, end: 20070301
  2. DIGOXIN [Suspect]
     Dosage: (PO) (0.25 MG; QD; PO) (0.125 MG; QD; PO)
     Route: 048
     Dates: start: 19980101
  3. DIGOXIN [Suspect]
     Dosage: (PO) (0.25 MG; QD; PO) (0.125 MG; QD; PO)
     Route: 048
     Dates: start: 20020101
  4. HYDROCODONE [Concomitant]
  5. RISPERDAL [Concomitant]
  6. ENALAPRIL [Concomitant]
  7. PACERONE [Concomitant]
  8. LASIX [Concomitant]
  9. SPIRONOLACTONE [Concomitant]
  10. DEPAKOTE [Concomitant]
  11. ZOLOFT [Concomitant]
  12. AMOXICILLIN [Concomitant]
  13. STERALINE [Concomitant]
  14. PREVACID [Concomitant]
  15. AZITHROMYCIN [Concomitant]
  16. MITRYPTILIN [Concomitant]
  17. ISOMETH [Concomitant]
  18. TOPMAX [Concomitant]
  19. AMIODARONE [Concomitant]
  20. ATENOLOL [Concomitant]
  21. VASOTEC [Concomitant]
  22. TRAZODONE [Concomitant]
  23. TEGRETOL [Concomitant]
  24. ASPIRIN [Concomitant]
  25. ENALAPRIL [Concomitant]
  26. ALDACTONE [Concomitant]
  27. OXYCODONE HCL [Concomitant]
  28. EPINEPHRINE [Concomitant]
  29. ATROPINE [Concomitant]
  30. ELAVIL [Concomitant]
  31. ATIVAN [Concomitant]
  32. ALDACTIZINE [Concomitant]
  33. TOPROL-XL [Concomitant]
  34. CALCIUM GLUCONATE [Concomitant]
  35. ANCEF [Concomitant]
  36. SODIUM BICARB [Concomitant]

REACTIONS (61)
  - ABDOMINAL PAIN [None]
  - ABNORMAL BEHAVIOUR [None]
  - ACUTE RESPIRATORY FAILURE [None]
  - AFFECT LABILITY [None]
  - AMNESIA [None]
  - ANXIETY [None]
  - ARRHYTHMIA [None]
  - ATRIAL FIBRILLATION [None]
  - ATRIAL FLUTTER [None]
  - BALANCE DISORDER [None]
  - BRAIN INJURY [None]
  - CARDIAC ARREST [None]
  - CARDIOACTIVE DRUG LEVEL INCREASED [None]
  - CEREBRAL DISORDER [None]
  - COLITIS [None]
  - COMA [None]
  - CONTUSION [None]
  - DECREASED APPETITE [None]
  - DEHYDRATION [None]
  - DEVICE MALFUNCTION [None]
  - DISORIENTATION [None]
  - DIVERTICULITIS [None]
  - DIZZINESS [None]
  - ECONOMIC PROBLEM [None]
  - ELECTROENCEPHALOGRAM ABNORMAL [None]
  - ENCEPHALOPATHY [None]
  - FALL [None]
  - FATIGUE [None]
  - FOOT FRACTURE [None]
  - GAIT DISTURBANCE [None]
  - GASTROENTERITIS [None]
  - HEAD INJURY [None]
  - HEADACHE [None]
  - HYDROCEPHALUS [None]
  - HYPOCALCAEMIA [None]
  - HYPOPHAGIA [None]
  - HYPOXIC-ISCHAEMIC ENCEPHALOPATHY [None]
  - INJURY [None]
  - LETHARGY [None]
  - LONG QT SYNDROME [None]
  - MAGNESIUM METABOLISM DISORDER [None]
  - MALAISE [None]
  - MIGRAINE [None]
  - MITRAL VALVE DISEASE [None]
  - MITRAL VALVE INCOMPETENCE [None]
  - NAUSEA [None]
  - NERVOUS SYSTEM DISORDER [None]
  - PLASMA PROTEIN METABOLISM DISORDER [None]
  - PUPIL FIXED [None]
  - PYREXIA [None]
  - RENAL IMPAIRMENT [None]
  - SICK SINUS SYNDROME [None]
  - SINUS ARRHYTHMIA [None]
  - SOMNOLENCE [None]
  - STAPHYLOCOCCAL INFECTION [None]
  - SUBDURAL HAEMATOMA [None]
  - SUPRAVENTRICULAR TACHYCARDIA [None]
  - THYROID FUNCTION TEST ABNORMAL [None]
  - UNRESPONSIVE TO STIMULI [None]
  - VENTRICULAR DYSFUNCTION [None]
  - VOMITING [None]
